FAERS Safety Report 6108227-8 (Version None)
Quarter: 2009Q1

REPORT INFORMATION
  Report Type: 
  Country: None (occurrence: None)
  Receive Date: 20090304
  Receipt Date: 20080603
  Transmission Date: 20090719
  Serious: Yes (Hospitalization)
  Sender: FDA-Public Use
  Company Number: US-001145

PATIENT
  Age: 32 Year
  Sex: Female

DRUGS (3)
  1. ISOVUE-370 [Suspect]
     Indication: ABDOMINAL PAIN
     Dosage: 100ML QD INTRAVENOUS
     Route: 042
     Dates: start: 20080602, end: 20080602
  2. ISOVUE-370 [Suspect]
     Indication: COMPUTERISED TOMOGRAM ABDOMEN
     Dosage: 100ML QD INTRAVENOUS
     Route: 042
     Dates: start: 20080602, end: 20080602
  3. ISOVUE-370 [Suspect]
     Indication: URINARY TRACT INFECTION
     Dosage: 100ML QD INTRAVENOUS
     Route: 042
     Dates: start: 20080602, end: 20080602

REACTIONS (1)
  - ANAPHYLACTOID REACTION [None]
